FAERS Safety Report 5788687-2 (Version None)
Quarter: 2008Q2

REPORT INFORMATION
  Report Type: 
  Country: None (occurrence: None)
  Receive Date: 20080618
  Receipt Date: 20080411
  Transmission Date: 20081010
  Serious: Yes (Other)
  Sender: FDA-Public Use
  Company Number: 200718240US

PATIENT
  Age: 55 Year
  Sex: Female

DRUGS (5)
  1. LANTUS [Suspect]
     Indication: TYPE 1 DIABETES MELLITUS
     Dosage: 12 U QD INJ
  2. HUMALOG [Suspect]
  3. SYNTHROID [Concomitant]
  4. LOVASTATIN [Concomitant]
  5. ESTROGENS CONJUGATED (CENESTIN) [Concomitant]

REACTIONS (2)
  - DRUG INEFFECTIVE [None]
  - HYPOGLYCAEMIA [None]
